FAERS Safety Report 7246396-7 (Version None)
Quarter: 2011Q1

REPORT INFORMATION
  Report Type: 
  Country: None (occurrence: None)
  Receive Date: 20110126
  Receipt Date: 20091229
  Transmission Date: 20110831
  Serious: No
  Sender: FDA-Public Use
  Company Number: US-BAUSCH-2009BL006821

PATIENT
  Age: 68 Year
  Sex: Female

DRUGS (2)
  1. ZYLET [Suspect]
     Indication: OFF LABEL USE
     Route: 047
     Dates: start: 20091129, end: 20091204
  2. ZYLET [Suspect]
     Indication: BLEPHARITIS
     Route: 047
     Dates: start: 20091129, end: 20091204

REACTIONS (3)
  - CONDITION AGGRAVATED [None]
  - DRUG INEFFECTIVE FOR UNAPPROVED INDICATION [None]
  - BLEPHARITIS [None]
